FAERS Safety Report 26201860 (Version 1)
Quarter: 2025Q4

REPORT INFORMATION
  Report Type: Spontaneous
  Country: US (occurrence: US)
  Receive Date: 20251226
  Receipt Date: 20251226
  Transmission Date: 20260118
  Serious: No
  Sender: SUNOVION
  Company Number: US-SMPA-2025SPA016520

PATIENT
  Sex: Female

DRUGS (3)
  1. GEMTESA [Suspect]
     Active Substance: VIBEGRON
     Indication: Product used for unknown indication
     Dosage: UNK
     Route: 048
  2. LYRICA [Concomitant]
     Active Substance: PREGABALIN
  3. MELATONIN [Concomitant]
     Active Substance: MELATONIN
     Dosage: UNK

REACTIONS (1)
  - Nocturia [Unknown]
